FAERS Safety Report 10200938 (Version 1)
Quarter: 2014Q2

REPORT INFORMATION
  Report Type: Report from Study
  Country: CA (occurrence: CA)
  Receive Date: 20140528
  Receipt Date: 20140528
  Transmission Date: 20141212
  Serious: Yes (Other)
  Sender: FDA-Public Use
  Company Number: CA-JNJFOC-20140514393

PATIENT
  Sex: Female
  Weight: 78 kg

DRUGS (5)
  1. SIMPONI [Suspect]
     Indication: RHEUMATOID ARTHRITIS
     Route: 042
     Dates: start: 20140415
  2. CELEBREX [Concomitant]
     Route: 065
  3. ARAVA [Concomitant]
     Route: 065
  4. PREDNISONE [Concomitant]
     Route: 065
  5. LYRICA [Concomitant]
     Route: 065

REACTIONS (1)
  - Neoplasm malignant [Unknown]
